FAERS Safety Report 9530356 (Version 3)
Quarter: 2014Q1

REPORT INFORMATION
  Report Type: Report from Study
  Country: CA (occurrence: CA)
  Receive Date: 20130918
  Receipt Date: 20140321
  Transmission Date: 20141002
  Serious: Yes (Death, Other)
  Sender: FDA-Public Use
  Company Number: CA-ROCHE-1276768

PATIENT
  Age: 57 Year
  Sex: Male
  Weight: 68 kg

DRUGS (10)
  1. XELODA [Suspect]
     Indication: GASTROOESOPHAGEAL CANCER
     Route: 048
     Dates: start: 20130805
  2. HERCEPTIN [Suspect]
     Indication: OESOPHAGEAL CARCINOMA
     Dosage: 21/JAN/2014 310 MG
     Route: 042
     Dates: start: 20131023, end: 20140121
  3. SENOKOT-S [Concomitant]
     Route: 065
  4. DOMPERIDONE [Concomitant]
     Route: 065
  5. DECADRON [Concomitant]
     Route: 065
  6. CLONAZEPAM [Concomitant]
     Route: 065
  7. PANTOLOC [Concomitant]
     Route: 065
  8. ZOPICLONE [Concomitant]
     Route: 065
  9. NEXIUM [Concomitant]
  10. OCTREOTIDE [Concomitant]

REACTIONS (2)
  - HER-2 positive breast cancer [Not Recovered/Not Resolved]
  - Death [Fatal]
